FAERS Safety Report 24544936 (Version 2)
Quarter: 2024Q4

REPORT INFORMATION
  Report Type: Spontaneous
  Country: US (occurrence: US)
  Receive Date: 20241024
  Receipt Date: 20241030
  Transmission Date: 20250115
  Serious: No
  Sender: PFIZER
  Company Number: US-PFIZER INC-PV202400003902

PATIENT
  Age: 71 Year
  Sex: Male
  Weight: 95.238 kg

DRUGS (4)
  1. TIKOSYN [Suspect]
     Active Substance: DOFETILIDE
     Indication: Atrial tachycardia
     Dosage: UNK
  2. TIKOSYN [Suspect]
     Active Substance: DOFETILIDE
     Indication: Atrial fibrillation
     Dosage: 125 UG, 2X/DAY
     Route: 048
     Dates: start: 20241024
  3. TIKOSYN [Suspect]
     Active Substance: DOFETILIDE
     Indication: Cardiac amyloidosis
  4. TIKOSYN [Suspect]
     Active Substance: DOFETILIDE
     Indication: Supraventricular tachycardia

REACTIONS (2)
  - Confusional state [Unknown]
  - Nervousness [Unknown]
